FAERS Safety Report 7482085-1 (Version None)
Quarter: 2011Q2

REPORT INFORMATION
  Report Type: 
  Country: None (occurrence: None)
  Receive Date: 20110516
  Receipt Date: 20110506
  Transmission Date: 20111010
  Serious: Yes (Hospitalization)
  Sender: FDA-Public Use
  Company Number: PHHY2011IT38545

PATIENT
  Sex: Male

DRUGS (10)
  1. FLUOROURACIL [Suspect]
     Indication: NASOPHARYNGEAL CANCER
     Dosage: UNK UKN, UNK
     Dates: start: 20110306
  2. CISPLATIN [Suspect]
     Indication: NASOPHARYNGEAL CANCER
     Dosage: UNK UKN, UNK
     Dates: start: 20110306, end: 20110327
  3. ACETYL SALICYLIC ACID USP BAT [Concomitant]
     Dosage: UNK UKN, UNK
  4. PRAVASTATIN [Concomitant]
     Dosage: UNK UKN, UNK
  5. TAXOTERE [Suspect]
     Indication: NASOPHARYNGEAL CANCER
     Dosage: UNK UKN, UNK
     Dates: start: 20110306, end: 20110327
  6. NITRATES [Concomitant]
     Dosage: UNK UKN, UNK
  7. METFORMIN HCL [Concomitant]
     Dosage: UNK UKN, UNK
  8. GLYCAZIDE [Concomitant]
     Dosage: UNK UKN, UNK
  9. OMEGA 3 INTEGRATOR [Concomitant]
     Dosage: UNK UKN, UNK
  10. DILTIAZEM [Concomitant]
     Dosage: UNK UKN, UNK

REACTIONS (2)
  - HEPATITIS CHOLESTATIC [None]
  - STOMATITIS [None]
